FAERS Safety Report 4617953-9 (Version None)
Quarter: 2005Q1

REPORT INFORMATION
  Report Type: 
  Country: None (occurrence: None)
  Receive Date: 20050322
  Receipt Date: 20050315
  Transmission Date: 20050727
  Serious: Yes (Other)
  Sender: FDA-Public Use
  Company Number: 805#1#2005-00012

PATIENT
  Age: 4 Day
  Sex: Male

DRUGS (4)
  1. ALPROSTADIL [Suspect]
     Indication: HEART DISEASE CONGENITAL
     Dosage: SEE IMAGE
     Route: 041
     Dates: start: 20050111, end: 20050112
  2. ALPROSTADIL [Suspect]
     Indication: PATENT DUCTUS ARTERIOSUS
     Dosage: SEE IMAGE
     Route: 041
     Dates: start: 20050111, end: 20050112
  3. ALPROSTADIL [Suspect]
     Indication: HEART DISEASE CONGENITAL
     Dosage: SEE IMAGE
     Route: 041
     Dates: start: 20050112, end: 20050113
  4. ALPROSTADIL [Suspect]
     Indication: PATENT DUCTUS ARTERIOSUS
     Dosage: SEE IMAGE
     Route: 041
     Dates: start: 20050112, end: 20050113

REACTIONS (2)
  - NEONATAL DISORDER [None]
  - PULMONARY HAEMORRHAGE [None]
